FAERS Safety Report 12310818 (Version 2)
Quarter: 2016Q2

REPORT INFORMATION
  Report Type: Spontaneous
  Country: US (occurrence: US)
  Receive Date: 20160427
  Receipt Date: 20160518
  Transmission Date: 20160815
  Serious: Yes (Death, Hospitalization, Other)
  Sender: FDA-Public Use
  Company Number: US-MDT-ADR-2016-00749

PATIENT
  Age: 61 Year
  Sex: Female

DRUGS (20)
  1. CHANTIX [Suspect]
     Active Substance: VARENICLINE TARTRATE
  2. BUPIVACAINE. [Suspect]
     Active Substance: BUPIVACAINE
     Dosage: 15.033MG/DAY
     Route: 037
  3. GLUCOSAMINE CHONDROITIN [Suspect]
     Active Substance: CHONDROITIN SULFATE (BOVINE)\GLUCOSAMINE HYDROCHLORIDE
     Dosage: 1500MG/DAY
  4. LYRICA [Suspect]
     Active Substance: PREGABALIN
  5. OXYCODONE [Suspect]
     Active Substance: OXYCODONE
     Dosage: 40MG TID
  6. SYMBICORT [Suspect]
     Active Substance: BUDESONIDE\FORMOTEROL FUMARATE DIHYDRATE
  7. ABILIFY [Suspect]
     Active Substance: ARIPIPRAZOLE
  8. SYNTHROID [Suspect]
     Active Substance: LEVOTHYROXINE SODIUM
  9. VITAMIN D [Suspect]
     Active Substance: CHOLECALCIFEROL
  10. ADDERALL [Suspect]
     Active Substance: AMPHETAMINE ASPARTATE\AMPHETAMINE SULFATE\DEXTROAMPHETAMINE SACCHARATE\DEXTROAMPHETAMINE SULFATE
  11. NEXIUM [Suspect]
     Active Substance: ESOMEPRAZOLE MAGNESIUM
  12. ZOFRAN [Suspect]
     Active Substance: ONDANSETRON HYDROCHLORIDE
     Dosage: 8MG TID
  13. LACTULOSE. [Suspect]
     Active Substance: LACTULOSE
  14. CLONIDINE. [Suspect]
     Active Substance: CLONIDINE
     Dosage: 150.33MCG/DAY
     Route: 037
  15. SPIRIVA [Suspect]
     Active Substance: TIOTROPIUM BROMIDE MONOHYDRATE
  16. CLARITIN-D 12 HOUR [Suspect]
     Active Substance: LORATADINE\PSEUDOEPHEDRINE SULFATE
  17. VESICARE [Suspect]
     Active Substance: SOLIFENACIN SUCCINATE
  18. MULTIVITAMIN [Suspect]
     Active Substance: VITAMINS
  19. DILAUDID [Suspect]
     Active Substance: HYDROMORPHONE HYDROCHLORIDE
     Dosage: 12.026MG/DAY
     Route: 037
  20. COMPOUNDED BACLOFEN [Suspect]
     Active Substance: BACLOFEN
     Dosage: 481.04MCG/DAY
     Route: 037

REACTIONS (3)
  - Myocardial necrosis marker increased [Fatal]
  - Chronic obstructive pulmonary disease [Fatal]
  - Oxygen saturation decreased [Fatal]
